FAERS Safety Report 8998936 (Version 2)
Quarter: 2013Q1

REPORT INFORMATION
  Report Type: Report from Study
  Country: US (occurrence: US)
  Receive Date: 20130103
  Receipt Date: 20130107
  Transmission Date: 20140127
  Serious: Yes (Death, Hospitalization)
  Sender: FDA-Public Use
  Company Number: US-ASTELLAS-2012US012904

PATIENT
  Age: 75 Year
  Sex: Male

DRUGS (1)
  1. ERLOTINIB TABLET [Suspect]
     Indication: TRACHEAL CANCER
     Dosage: 150 MG, UID/QD
     Route: 048
     Dates: start: 20121203

REACTIONS (2)
  - Death [Fatal]
  - Pulmonary oedema [Unknown]
